FAERS Safety Report 4977454-5 (Version None)
Quarter: 2006Q2

REPORT INFORMATION
  Report Type: 
  Country: None (occurrence: None)
  Receive Date: 20060413
  Receipt Date: 20060331
  Transmission Date: 20061013
  Serious: Yes (Other)
  Sender: FDA-Public Use
  Company Number: 2006046875

PATIENT
  Age: 45 Year
  Sex: Male

DRUGS (4)
  1. VIAGRA [Suspect]
     Indication: ERECTILE DYSFUNCTION
     Dosage: ORAL
     Route: 048
  2. NEXIUM [Concomitant]
  3. LEVITRA [Concomitant]
  4. CIALIS [Concomitant]

REACTIONS (1)
  - CEREBRAL INFARCTION [None]
